FAERS Safety Report 4485716-3 (Version None)
Quarter: 2004Q4

REPORT INFORMATION
  Report Type: 
  Country: None (occurrence: None)
  Receive Date: 20041026
  Receipt Date: 20041013
  Transmission Date: 20050328
  Serious: Yes (Death)
  Sender: FDA-Public Use
  Company Number: FR-GLAXOSMITHKLINE-B0347984A

PATIENT
  Age: 75 Year
  Sex: Female

DRUGS (4)
  1. VALACYCLOVIR HCL [Suspect]
     Indication: HERPES ZOSTER
     Dosage: 500MG SEE DOSAGE TEXT
     Route: 048
     Dates: start: 20040901
  2. DEROXAT [Concomitant]
     Indication: DEPRESSION
  3. ACETAMINOPHEN [Concomitant]
  4. TANAKAN [Concomitant]
     Dosage: 6UNIT PER DAY

REACTIONS (2)
  - HAEMATEMESIS [None]
  - NAUSEA [None]
